FAERS Safety Report 17154518 (Version 2)
Quarter: 2019Q4

REPORT INFORMATION
  Report Type: Report from Study
  Country: US (occurrence: US)
  Receive Date: 20191213
  Receipt Date: 20191219
  Transmission Date: 20200122
  Serious: No
  Sender: FDA-Public Use
  Company Number: NVSC2019US010012

PATIENT
  Sex: Female

DRUGS (1)
  1. PIQRAY [Suspect]
     Active Substance: ALPELISIB
     Indication: PRODUCT USED FOR UNKNOWN INDICATION
     Route: 048

REACTIONS (7)
  - Weight decreased [Unknown]
  - Thirst [Not Recovered/Not Resolved]
  - Blood glucose increased [Unknown]
  - Foot fracture [Unknown]
  - Fatigue [Unknown]
  - Dry mouth [Unknown]
  - Decreased appetite [Unknown]
